FAERS Safety Report 4525321-3 (Version None)
Quarter: 2004Q4

REPORT INFORMATION
  Report Type: 
  Country: None (occurrence: None)
  Receive Date: 20041213
  Receipt Date: 20041201
  Transmission Date: 20050328
  Serious: Yes (Other)
  Sender: FDA-Public Use
  Company Number: 200419213US

PATIENT
  Age: 26 Year
  Sex: Male

DRUGS (1)
  1. KETEK [Suspect]
     Indication: INFLUENZA

REACTIONS (1)
  - PUPILS UNEQUAL [None]
